FAERS Safety Report 5207495-4 (Version None)
Quarter: 2007Q1

REPORT INFORMATION
  Report Type: 
  Country: None (occurrence: None)
  Receive Date: 20070112
  Receipt Date: 20070109
  Transmission Date: 20070707
  Serious: Yes (Hospitalization)
  Sender: FDA-Public Use
  Company Number: CN-BOEHRINGER INGELHEIM GMBH, GERMANY-2007-DE-00150GD

PATIENT
  Age: 37 Year
  Sex: Male

DRUGS (3)
  1. ASPIRIN [Suspect]
     Indication: HEADACHE
  2. DEXAMETHASONE [Suspect]
     Indication: PROPHYLAXIS
     Dosage: INITIALLY 8 MG FOLLOWED BY 4 MG EVERY 8 H
     Route: 048
  3. DEXAMETHASONE [Suspect]
     Indication: MOUNTAIN SICKNESS ACUTE

REACTIONS (12)
  - ABDOMINAL PAIN [None]
  - DRUG INEFFECTIVE [None]
  - DUODENAL ULCER [None]
  - FATIGUE [None]
  - GASTRIC HAEMORRHAGE [None]
  - GASTRIC ULCER [None]
  - GASTROINTESTINAL HAEMORRHAGE [None]
  - HAEMOGLOBIN DECREASED [None]
  - HYPOTENSION [None]
  - MELAENA [None]
  - NAUSEA [None]
  - SINUS TACHYCARDIA [None]
